FAERS Safety Report 6163792-X (Version None)
Quarter: 2009Q2

REPORT INFORMATION
  Report Type: 
  Country: None (occurrence: None)
  Receive Date: 20090420
  Receipt Date: 20090420
  Transmission Date: 20091009
  Serious: Yes (Other)
  Sender: FDA-Public Use
  Company Number: None

PATIENT
  Age: 44 Year
  Sex: Female
  Weight: 104.3273 kg

DRUGS (1)
  1. NORTRIPTYLINE HCL [Suspect]
     Indication: PAIN MANAGEMENT
     Dosage: 225 MG 1 DAY AT NIGHT PO
     Route: 048
     Dates: start: 20090202, end: 20090320

REACTIONS (4)
  - DRUG DOSE OMISSION [None]
  - DRUG HYPERSENSITIVITY [None]
  - HYPOTHYROIDISM [None]
  - INSOMNIA [None]
